FAERS Safety Report 15603442 (Version 1)
Quarter: 2018Q4

REPORT INFORMATION
  Report Type: Spontaneous
  Country: DE (occurrence: DE)
  Receive Date: 20181109
  Receipt Date: 20181109
  Transmission Date: 20190205
  Serious: Yes (Other)
  Sender: FDA-Public Use
  Company Number: DE-SHIRE-DE201842651

PATIENT

DRUGS (4)
  1. PREDNISOLONE. [Concomitant]
     Active Substance: PREDNISOLONE
     Indication: ORAL LICHEN PLANUS
  2. ACITRETIN. [Concomitant]
     Active Substance: ACITRETIN
     Indication: ORAL LICHEN PLANUS
  3. KIOVIG [Suspect]
     Active Substance: HUMAN IMMUNOGLOBULIN G
     Indication: ORAL LICHEN PLANUS
     Dosage: 2 G/KG, 1X A MONTH
     Route: 042
  4. KIOVIG [Suspect]
     Active Substance: HUMAN IMMUNOGLOBULIN G
     Indication: OFF LABEL USE

REACTIONS (2)
  - Leukopenia [Unknown]
  - Off label use [Unknown]
